FAERS Safety Report 6841706-4 (Version None)
Quarter: 2010Q3

REPORT INFORMATION
  Report Type: 
  Country: None (occurrence: None)
  Receive Date: 20100714
  Receipt Date: 20070710
  Transmission Date: 20110219
  Serious: No
  Sender: FDA-Public Use
  Company Number: US-PFIZER INC-2007058838

PATIENT
  Sex: Female
  Weight: 58.2 kg

DRUGS (5)
  1. CHANTIX [Suspect]
     Dates: start: 20070701
  2. PROMETHAZINE [Suspect]
     Indication: NAUSEA
  3. ZYRTEC [Concomitant]
  4. MONTELUKAST SODIUM [Concomitant]
  5. IMITREX [Concomitant]

REACTIONS (3)
  - MIGRAINE [None]
  - NAUSEA [None]
  - SOMNOLENCE [None]
